FAERS Safety Report 25496823 (Version 1)
Quarter: 2025Q3

REPORT INFORMATION
  Report Type: Spontaneous
  Country: KR (occurrence: KR)
  Receive Date: 20250701
  Receipt Date: 20250701
  Transmission Date: 20251020
  Serious: Yes (Other)
  Sender: MDD OPERATIONS
  Company Number: KR-ZAMBON-202502239COR

PATIENT
  Sex: Female

DRUGS (10)
  1. SAFINAMIDE [Suspect]
     Active Substance: SAFINAMIDE
     Indication: Parkinson^s disease
     Route: 048
     Dates: start: 20240618
  2. Ezetimibe/Rosuvastatin Calcium [Concomitant]
     Indication: Parkinson^s disease
     Dates: start: 20240618
  3. ASPIRIN [Concomitant]
     Active Substance: ASPIRIN
     Indication: Parkinson^s disease
     Dates: start: 20240618
  4. REBAMIPIDE [Concomitant]
     Active Substance: REBAMIPIDE
     Indication: Parkinson^s disease
     Dates: start: 20240618
  5. ROPINIROLE HYDROCHLORIDE [Concomitant]
     Active Substance: ROPINIROLE HYDROCHLORIDE
     Indication: Parkinson^s disease
     Dates: start: 20240618
  6. ITOPRIDE HYDROCHLORIDE [Concomitant]
     Active Substance: ITOPRIDE HYDROCHLORIDE
     Indication: Parkinson^s disease
     Dates: start: 20240618
  7. CARBIDOPA\LEVODOPA [Concomitant]
     Active Substance: CARBIDOPA\LEVODOPA
     Indication: Parkinson^s disease
     Dates: start: 20240618
  8. MAGNESIUM HYDROXIDE [Concomitant]
     Active Substance: MAGNESIUM HYDROXIDE
     Indication: Parkinson^s disease
     Dates: start: 20240618
  9. CHOLINE ALFOSCERATE [Concomitant]
     Active Substance: CHOLINE ALFOSCERATE
     Indication: Parkinson^s disease
     Dates: start: 20240618, end: 20240802
  10. DONEPEZIL [Concomitant]
     Active Substance: DONEPEZIL
     Indication: Parkinson^s disease
     Dates: start: 20240618

REACTIONS (3)
  - Seizure [Unknown]
  - Hyperventilation [Unknown]
  - Decreased appetite [Unknown]

NARRATIVE: CASE EVENT DATE: 20240618
